FAERS Safety Report 14786727 (Version 2)
Quarter: 2018Q2

REPORT INFORMATION
  Report Type: Report from Study
  Country: IL (occurrence: IL)
  Receive Date: 20180420
  Receipt Date: 20180504
  Transmission Date: 20180711
  Serious: Yes (Death, Hospitalization)
  Sender: FDA-Public Use
  Company Number: IL-ACTELION-A-US2018-171105

PATIENT
  Age: 77 Year
  Sex: Female

DRUGS (9)
  1. XARELTO [Suspect]
     Active Substance: RIVAROXABAN
     Indication: PRODUCT USED FOR UNKNOWN INDICATION
     Route: 065
  2. CARDILOC [Concomitant]
     Active Substance: BISOPROLOL FUMARATE
  3. FUSID [Concomitant]
     Active Substance: FUROSEMIDE
  4. VENTAVIS [Suspect]
     Active Substance: ILOPROST
     Dosage: UNK, TID
     Route: 055
  5. AMARYL [Concomitant]
     Active Substance: GLIMEPIRIDE
  6. GLUCOPHAGE [Concomitant]
     Active Substance: METFORMIN HYDROCHLORIDE
  7. NORVASC [Concomitant]
     Active Substance: AMLODIPINE BESYLATE
  8. AMIODARONE HYDROCHLORIDE. [Concomitant]
     Active Substance: AMIODARONE HYDROCHLORIDE
  9. VENTAVIS [Suspect]
     Active Substance: ILOPROST
     Indication: PULMONARY HYPERTENSION
     Dosage: UNK, QID
     Route: 055
     Dates: start: 20161129, end: 20180320

REACTIONS (5)
  - Inappropriate schedule of drug administration [Unknown]
  - Head injury [Not Recovered/Not Resolved]
  - Brain stem haemorrhage [Fatal]
  - Acute kidney injury [Fatal]
  - Fall [Not Recovered/Not Resolved]

NARRATIVE: CASE EVENT DATE: 201803
